FAERS Safety Report 10452112 (Version 1)
Quarter: 2014Q3

REPORT INFORMATION
  Report Type: Spontaneous
  Country: GB (occurrence: GB)
  Receive Date: 20140915
  Receipt Date: 20140915
  Transmission Date: 20150326
  Serious: Yes (Hospitalization)
  Sender: FDA-Public Use
  Company Number: GB-AUROBINDO-AUR-APL-2014-09618

PATIENT
  Age: 53 Year
  Sex: Female

DRUGS (1)
  1. CO-AMOXICLAV 500 MG /125 MG FILM-COATED TABLETS [Suspect]
     Active Substance: AMOXICILLIN\CLAVULANIC ACID
     Indication: SPINAL PAIN
     Dosage: 1250 MG, 3 TIMES A DAY
     Route: 048
     Dates: start: 20140609, end: 20140827

REACTIONS (3)
  - Liver function test abnormal [Recovering/Resolving]
  - Chest pain [Recovering/Resolving]
  - Drug-induced liver injury [Recovering/Resolving]
